FAERS Safety Report 7712163-0 (Version None)
Quarter: 2011Q3

REPORT INFORMATION
  Report Type: 
  Country: None (occurrence: None)
  Receive Date: 20110826
  Receipt Date: 20110818
  Transmission Date: 20111222
  Serious: Yes (Life-Threatening, Hospitalization, Other)
  Sender: FDA-Public Use
  Company Number: FR-UCBSA-036432

PATIENT
  Sex: Male
  Weight: 72 kg

DRUGS (13)
  1. MEROPENEM [Concomitant]
     Route: 042
     Dates: start: 20110422
  2. MEROPENEM [Concomitant]
     Indication: NOCARDIOSIS
     Dates: start: 20110415, end: 20110401
  3. CRESTOR [Concomitant]
     Indication: DYSLIPIDAEMIA
     Route: 048
  4. CITALOPRAM HYDROBROMIDE [Concomitant]
     Indication: DEPRESSION
     Dosage: 1 UNIT DAILY
     Route: 048
     Dates: start: 20110221, end: 20110626
  5. VIMPAT [Suspect]
     Indication: EPILEPSY
     Dates: start: 20110621, end: 20110626
  6. KEPPRA [Suspect]
     Indication: EPILEPSY
     Route: 048
     Dates: start: 20110422
  7. PANTOPRAZOLE SODIUM [Concomitant]
     Dosage: 1 UNIT DAILY
     Route: 048
     Dates: start: 20110422, end: 20110626
  8. PRIMALAN [Concomitant]
     Indication: EOSINOPHILIC PUSTULAR FOLLICULITIS
     Route: 048
     Dates: start: 20110601, end: 20110701
  9. PREDNISONE [Concomitant]
     Indication: ABSCESS
  10. CONTRAMAL LP [Concomitant]
     Indication: PAIN
     Dosage: 100 MG, 0.5 UNIT DAILY
     Route: 048
     Dates: start: 20110401, end: 20110701
  11. ESCITALOPRAM OXALATE [Concomitant]
     Indication: DEPRESSION
  12. XYZAL [Suspect]
     Indication: EOSINOPHILIC PUSTULAR FOLLICULITIS
     Route: 048
     Dates: start: 20110601, end: 20110626
  13. UNSPECIFIED ANTIBIOTIC [Concomitant]
     Route: 048

REACTIONS (5)
  - AGRANULOCYTOSIS [None]
  - INFLUENZA LIKE ILLNESS [None]
  - CONVULSION [None]
  - CYTOLYTIC HEPATITIS [None]
  - CENTRAL NERVOUS SYSTEM ABSCESS [None]
